FAERS Safety Report 8243706 (Version 2)
Quarter: 2013Q2

REPORT INFORMATION
  Report Type: Spontaneous
  Country: US (occurrence: US)
  Receive Date: 20111114
  Receipt Date: 20130403
  Transmission Date: 20140414
  Serious: Yes (Disabling)
  Sender: FDA-Public Use
  Company Number: US-GLAXOSMITHKLINE-A0917666A

PATIENT
  Age: 69 Year
  Sex: Male
  Weight: 114.1 kg

DRUGS (1)
  1. AVANDIA [Suspect]
     Indication: DIABETES MELLITUS
     Dosage: 4MG PER DAY
     Route: 048
     Dates: start: 20031022, end: 20070910

REACTIONS (5)
  - Cardiovascular disorder [Not Recovered/Not Resolved]
  - Surgery [Unknown]
  - Spinal disorder [Unknown]
  - Physical disability [Unknown]
  - Coronary artery disease [Unknown]
